FAERS Safety Report 18398503 (Version 1)
Quarter: 2020Q4

REPORT INFORMATION
  Report Type: Spontaneous
  Country: US (occurrence: US)
  Receive Date: 20201019
  Receipt Date: 20201019
  Transmission Date: 20210114
  Serious: No
  Sender: FDA-Public Use
  Company Number: None

PATIENT
  Age: 84 Year
  Sex: Male
  Weight: 90.26 kg

DRUGS (1)
  1. LEVOTHYROXINE (LEVOTHYROXINE NA 0.075MG TAB) [Suspect]
     Active Substance: LEVOTHYROXINE SODIUM
     Indication: HYPOTHYROIDISM
     Route: 048
     Dates: start: 20200309, end: 20200723

REACTIONS (3)
  - Melaena [None]
  - Therapy cessation [None]
  - Faeces discoloured [None]

NARRATIVE: CASE EVENT DATE: 20200723
